FAERS Safety Report 6431739-4 (Version None)
Quarter: 2009Q4

REPORT INFORMATION
  Report Type: 
  Country: None (occurrence: None)
  Receive Date: 20091104
  Receipt Date: 20091026
  Transmission Date: 20100525
  Serious: Yes (Other)
  Sender: FDA-Public Use
  Company Number: 231730K08USA

PATIENT
  Age: 29 Year
  Sex: Female
  Weight: 113 kg

DRUGS (11)
  1. REBIF [Suspect]
     Indication: MULTIPLE SCLEROSIS
     Dosage: 44 MCG, 3 IN 1 WEEKS, SUBCUTANEOUS
     Route: 058
     Dates: start: 20070701, end: 20071101
  2. REBIF [Suspect]
     Indication: MULTIPLE SCLEROSIS
     Dosage: 44 MCG, 3 IN 1 WEEKS, SUBCUTANEOUS
     Route: 058
     Dates: start: 20080408, end: 20090101
  3. STEROID (CORTICOSTEROID NOS) [Suspect]
     Indication: ASTHMA
     Dates: start: 20070101
  4. STEROID (CORTICOSTEROID NOS) [Suspect]
     Indication: MULTIPLE SCLEROSIS
     Dates: start: 20070101
  5. ZEGERID (OMEPRAZOLE) [Concomitant]
  6. ALVESCO [Concomitant]
  7. PRILOSEC [Concomitant]
  8. MECLIZINE [Concomitant]
  9. RANITIDINE [Concomitant]
  10. MONTELUKAST SODIUM [Concomitant]
  11. CRANBERRY TABLETS (VACCINIUM MACROCARPON) [Concomitant]

REACTIONS (6)
  - DIABETES MELLITUS [None]
  - DYSMENORRHOEA [None]
  - MENORRHAGIA [None]
  - NEPHROLITHIASIS [None]
  - PROTEINURIA [None]
  - URINARY INCONTINENCE [None]
